FAERS Safety Report 16693187 (Version 1)
Quarter: 2019Q3

REPORT INFORMATION
  Report Type: Report from Study
  Country: US (occurrence: US)
  Receive Date: 20190812
  Receipt Date: 20190812
  Transmission Date: 20191004
  Serious: Yes (Death, Other)
  Sender: FDA-Public Use
  Company Number: US-BAYER-2019-138869

PATIENT
  Age: 64 Year
  Sex: Female
  Weight: 65.76 kg

DRUGS (6)
  1. ADEMPAS [Suspect]
     Active Substance: RIOCIGUAT
     Indication: PULMONARY ARTERIAL HYPERTENSION
     Dosage: 2.5 MG, TID
     Route: 048
  2. ADEMPAS [Suspect]
     Active Substance: RIOCIGUAT
     Indication: PULMONARY ARTERIAL HYPERTENSION
     Dosage: UNK
     Dates: start: 20190204
  3. AMBRISENTAN [Concomitant]
     Active Substance: AMBRISENTAN
     Dosage: UNK
  4. ELIQUIS [Concomitant]
     Active Substance: APIXABAN
     Dosage: UNK
  5. UPTRAVI [Concomitant]
     Active Substance: SELEXIPAG
     Dosage: UNK
  6. ADEMPAS [Suspect]
     Active Substance: RIOCIGUAT
     Indication: PULMONARY ARTERIAL HYPERTENSION
     Dosage: 2.0 MG, TID
     Route: 048

REACTIONS (4)
  - Death [Fatal]
  - Blood pressure decreased [None]
  - Dyspnoea [Unknown]
  - Gastric antral vascular ectasia [None]

NARRATIVE: CASE EVENT DATE: 2019
